FAERS Safety Report 23211014 (Version 1)
Quarter: 2023Q4

REPORT INFORMATION
  Report Type: Spontaneous
  Country: IN (occurrence: IN)
  Receive Date: 20231121
  Receipt Date: 20231121
  Transmission Date: 20240109
  Serious: Yes (Hospitalization, Other)
  Sender: FDA-Public Use
  Company Number: IN-TORRENT-00003396

PATIENT
  Age: 4 Year
  Sex: Male

DRUGS (1)
  1. ACYCLOVIR [Suspect]
     Active Substance: ACYCLOVIR
     Indication: Encephalitis
     Dosage: UNKNOWN
     Route: 065

REACTIONS (3)
  - Urinary retention [Unknown]
  - Paraparesis [Unknown]
  - Acute disseminated encephalomyelitis [Unknown]
